FAERS Safety Report 17966604 (Version 3)
Quarter: 2020Q3

REPORT INFORMATION
  Report Type: Spontaneous
  Country: CA (occurrence: CA)
  Receive Date: 20200701
  Receipt Date: 20200921
  Transmission Date: 20201103
  Serious: Yes (Other)
  Sender: FDA-Public Use
  Company Number: CA-CELLTRION INC.-2019CA025253

PATIENT

DRUGS (7)
  1. INFLECTRA [Suspect]
     Active Substance: INFLIXIMAB-DYYB
     Dosage: 10 MG/KG (900 MG EVERY 6 WEEKS)
     Route: 042
     Dates: start: 20200717
  2. INFLECTRA [Suspect]
     Active Substance: INFLIXIMAB-DYYB
     Indication: COLITIS ULCERATIVE
     Dosage: 10 MG/KG, 900 MG, EVERY 6 WEEKS
     Route: 042
     Dates: start: 20190923
  3. INFLECTRA [Suspect]
     Active Substance: INFLIXIMAB-DYYB
     Dosage: 10 MG/KG (900 MG EVERY 6 WEEKS)
     Route: 042
     Dates: start: 20200602
  4. INFLECTRA [Suspect]
     Active Substance: INFLIXIMAB-DYYB
     Dosage: 10 MG/KG, 900 MG, EVERY 6 WEEKS
     Route: 042
     Dates: start: 20191105
  5. INFLECTRA [Suspect]
     Active Substance: INFLIXIMAB-DYYB
     Dosage: 10 MG/KG, 900 MG, EVERY 6 WEEKS
     Route: 042
     Dates: start: 20191218
  6. PREDNISONE. [Concomitant]
     Active Substance: PREDNISONE
     Dosage: 50 MG, UNK
     Route: 048
  7. PREDNISONE. [Concomitant]
     Active Substance: PREDNISONE
     Dosage: 50 MG
     Route: 065

REACTIONS (8)
  - Seasonal allergy [Unknown]
  - Heart rate decreased [Unknown]
  - Lipase increased [Unknown]
  - Drug level above therapeutic [Unknown]
  - Off label use [Unknown]
  - Intentional product use issue [Unknown]
  - Condition aggravated [Unknown]
  - Dermatitis psoriasiform [Unknown]

NARRATIVE: CASE EVENT DATE: 20190923
